FAERS Safety Report 9993820 (Version 1)
Quarter: 2014Q1

REPORT INFORMATION
  Report Type: Spontaneous
  Country: US (occurrence: US)
  Receive Date: 20140310
  Receipt Date: 20140310
  Transmission Date: 20141002
  Serious: No
  Sender: FDA-Public Use
  Company Number: US-AMGEN-USASP2013022047

PATIENT
  Age: 42 Year
  Sex: Female

DRUGS (3)
  1. SENSIPAR [Suspect]
     Indication: HYPERPARATHYROIDISM SECONDARY
     Dosage: 30 MG, QD
  2. COREG [Concomitant]
  3. ZEMPLAR [Concomitant]

REACTIONS (3)
  - Hypophagia [Unknown]
  - Nausea [Unknown]
  - Vomiting [Unknown]
